FAERS Safety Report 6836961-0 (Version None)
Quarter: 2010Q3

REPORT INFORMATION
  Report Type: 
  Country: None (occurrence: None)
  Receive Date: 20100713
  Receipt Date: 20070426
  Transmission Date: 20110219
  Serious: No
  Sender: FDA-Public Use
  Company Number: US-PFIZER INC-2007035224

PATIENT
  Sex: Female
  Weight: 79.38 kg

DRUGS (2)
  1. CHANTIX [Suspect]
     Indication: SMOKING CESSATION THERAPY
     Dates: start: 20070412, end: 20070422
  2. ZOCOR [Concomitant]
     Dates: start: 20040101

REACTIONS (3)
  - MIGRAINE [None]
  - MYALGIA [None]
  - NAUSEA [None]
